FAERS Safety Report 11945331 (Version 6)
Quarter: 2018Q1

REPORT INFORMATION
  Report Type: Spontaneous
  Country: BR (occurrence: BR)
  Receive Date: 20160125
  Receipt Date: 20180306
  Transmission Date: 20180508
  Serious: Yes (Hospitalization, Other)
  Sender: FDA-Public Use
  Company Number: BR-PFIZER INC-2014237859

PATIENT
  Age: 59 Year
  Sex: Female
  Weight: 40 kg

DRUGS (10)
  1. FRONTAL [Suspect]
     Active Substance: ALPRAZOLAM
     Dosage: UNK
  2. FRONTAL [Suspect]
     Active Substance: ALPRAZOLAM
     Dosage: UNK
     Dates: start: 2003
  3. OMEZOLON [Concomitant]
     Dosage: UNK
  4. FRONTAL [Suspect]
     Active Substance: ALPRAZOLAM
     Indication: ANXIETY
     Dosage: 3 MG, 1X/DAY
  5. REMERON [Concomitant]
     Active Substance: MIRTAZAPINE
     Dosage: UNK
  6. FRONTAL [Suspect]
     Active Substance: ALPRAZOLAM
     Indication: AGITATION
     Dosage: 4 MG, UNK
  7. DONAREN [Concomitant]
     Active Substance: TRAZODONE HYDROCHLORIDE
     Dosage: UNK
  8. FRONTAL [Suspect]
     Active Substance: ALPRAZOLAM
     Dosage: UNK
  9. FRONTAL [Suspect]
     Active Substance: ALPRAZOLAM
     Dosage: 6.5 MG, UNK
     Dates: start: 2013
  10. FRONTAL [Suspect]
     Active Substance: ALPRAZOLAM
     Indication: DEPRESSION
     Dosage: 5 MG, 3.5 MG AND 2.5 MG, AS NEEDED
     Route: 048
     Dates: start: 2001

REACTIONS (42)
  - Vomiting [Recovered/Resolved]
  - Dizziness [Not Recovered/Not Resolved]
  - Eating disorder [Unknown]
  - Bone disorder [Not Recovered/Not Resolved]
  - Musculoskeletal stiffness [Not Recovered/Not Resolved]
  - Blindness [Not Recovered/Not Resolved]
  - Visual impairment [Not Recovered/Not Resolved]
  - Decreased appetite [Unknown]
  - Alopecia [Not Recovered/Not Resolved]
  - Chronic gastritis [Not Recovered/Not Resolved]
  - Product quality issue [Unknown]
  - Gastrointestinal pain [Recovered/Resolved]
  - Vision blurred [Recovered/Resolved]
  - Weight decreased [Not Recovered/Not Resolved]
  - Intervertebral disc protrusion [Not Recovered/Not Resolved]
  - Abdominal discomfort [Not Recovered/Not Resolved]
  - Drug effect variable [Unknown]
  - Malaise [Unknown]
  - Burning sensation [Recovered/Resolved]
  - Feeling hot [Recovered/Resolved]
  - Exostosis [Not Recovered/Not Resolved]
  - Throat irritation [Recovered/Resolved]
  - Diarrhoea [Recovered/Resolved]
  - Retching [Recovered/Resolved]
  - Acute sinusitis [Not Recovered/Not Resolved]
  - Hypertension [Recovered/Resolved]
  - Product physical issue [Unknown]
  - Dyspepsia [Recovered/Resolved]
  - Tremor [Not Recovered/Not Resolved]
  - Feeling abnormal [Unknown]
  - Anosmia [Not Recovered/Not Resolved]
  - Ageusia [Not Recovered/Not Resolved]
  - Gastrointestinal oedema [Not Recovered/Not Resolved]
  - Heart rate increased [Recovered/Resolved]
  - Nausea [Recovered/Resolved]
  - Body height decreased [Not Recovered/Not Resolved]
  - Scoliosis [Not Recovered/Not Resolved]
  - Influenza [Recovered/Resolved]
  - Dysgeusia [Not Recovered/Not Resolved]
  - Intentional product misuse [Unknown]
  - Drug ineffective [Recovered/Resolved]
  - Insomnia [Not Recovered/Not Resolved]

NARRATIVE: CASE EVENT DATE: 2013
